FAERS Safety Report 24771638 (Version 2)
Quarter: 2025Q4

REPORT INFORMATION
  Report Type: Spontaneous
  Country: US (occurrence: US)
  Receive Date: 20241224
  Receipt Date: 20251217
  Transmission Date: 20260117
  Serious: Yes (Other)
  Sender: BLUEPRINT MEDICINES
  Company Number: US-Blueprint Medicines Corporation-2024-AER-00004

PATIENT
  Age: 48 Year
  Sex: Female

DRUGS (1)
  1. AYVAKIT [Suspect]
     Active Substance: AVAPRITINIB
     Indication: Systemic mastocytosis
     Route: 065
     Dates: start: 20230913

REACTIONS (3)
  - Rheumatoid arthritis [Unknown]
  - Nasopharyngitis [Unknown]
  - Dysania [Unknown]

NARRATIVE: CASE EVENT DATE: 20241201
